FAERS Safety Report 25747745 (Version 2)
Quarter: 2025Q3

REPORT INFORMATION
  Report Type: Spontaneous
  Country: EU (occurrence: EU)
  Receive Date: 20250901
  Receipt Date: 20250916
  Transmission Date: 20251021
  Serious: Yes (Other)
  Sender: SANDOZ
  Company Number: EU-EMA-DD-20250819-7482645-110749

PATIENT
  Age: 8 Year
  Sex: Male

DRUGS (2)
  1. METHOTREXATE [Suspect]
     Active Substance: METHOTREXATE
     Indication: Non-Hodgkin^s lymphoma stage IV
     Dosage: UNK, QW WEEKLY
     Route: 065
  2. MERCAPTOPURINE [Suspect]
     Active Substance: MERCAPTOPURINE
     Indication: Non-Hodgkin^s lymphoma stage IV
     Dosage: DAILY
     Route: 048

REACTIONS (7)
  - Pruritus [Recovered/Resolved]
  - Rash [Recovered/Resolved]
  - Papule [Recovered/Resolved]
  - Pustule [Recovered/Resolved]
  - Demodicidosis [Recovered/Resolved]
  - Dermatitis [Recovered/Resolved]
  - Off label use [Unknown]
